FAERS Safety Report 5164726-7 (Version None)
Quarter: 2006Q4

REPORT INFORMATION
  Report Type: 
  Country: None (occurrence: None)
  Receive Date: 20061205
  Receipt Date: 20061201
  Transmission Date: 20070319
  Serious: Yes (Other)
  Sender: FDA-Public Use
  Company Number: US-GLAXOSMITHKLINE-A0629921A

PATIENT
  Sex: Female

DRUGS (2)
  1. PAXIL [Suspect]
     Indication: PANIC DISORDER
     Route: 065
     Dates: start: 19970101
  2. NO CONCURRENT MEDICATION [Concomitant]

REACTIONS (7)
  - ABORTION INDUCED [None]
  - DIVORCED [None]
  - DRUG EXPOSURE DURING PREGNANCY [None]
  - EMOTIONAL DISORDER [None]
  - EMOTIONAL DISTRESS [None]
  - PREGNANCY [None]
  - SELF ESTEEM DECREASED [None]
